FAERS Safety Report 11837533 (Version 1)
Quarter: 2015Q4

REPORT INFORMATION
  Report Type: Spontaneous
  Country: BE (occurrence: BE)
  Receive Date: 20151215
  Receipt Date: 20151215
  Transmission Date: 20160305
  Serious: Yes (Disabling, Other)
  Sender: FDA-Public Use
  Company Number: BE-PFIZER INC-2015435090

PATIENT
  Sex: Female

DRUGS (1)
  1. MEDROL [Suspect]
     Active Substance: METHYLPREDNISOLONE
     Indication: ASTHMA
     Dosage: 32 MG, 3X/DAY
     Route: 048
     Dates: start: 1990

REACTIONS (9)
  - Pancreatitis chronic [Unknown]
  - Osteonecrosis [Unknown]
  - Herpes zoster [Unknown]
  - Peripheral venous disease [Unknown]
  - Microangiopathy [Unknown]
  - Cardiac failure [Unknown]
  - Muscle atrophy [Unknown]
  - Thrombosis [Unknown]
  - Gastric ulcer [Unknown]
